FAERS Safety Report 5724488-9 (Version None)
Quarter: 2008Q2

REPORT INFORMATION
  Report Type: 
  Country: None (occurrence: None)
  Receive Date: 20080429
  Receipt Date: 20080423
  Transmission Date: 20081010
  Serious: Yes (Hospitalization)
  Sender: FDA-Public Use
  Company Number: E2020-02655-SPO-FR

PATIENT
  Age: 80 Year
  Sex: Female

DRUGS (7)
  1. ARICEPT [Suspect]
     Indication: DEMENTIA ALZHEIMER'S TYPE
     Dosage: 10 MG, 1 IN 1 D, ORAL
     Route: 048
     Dates: start: 20040401, end: 20080119
  2. ROCEPHIN [Concomitant]
  3. RAMIPRIL [Concomitant]
  4. NICARDIPINE HCL [Concomitant]
  5. PLAVIX [Concomitant]
  6. PRAVASTATIN [Concomitant]
  7. PRAXILENE (NAFTIDROFURYL OXALATE) [Concomitant]

REACTIONS (3)
  - BRONCHITIS [None]
  - BRONCHOPNEUMOPATHY [None]
  - DYSPNOEA [None]
